FAERS Safety Report 8063609-2 (Version None)
Quarter: 2011Q4

REPORT INFORMATION
  Report Type: 
  Country: None (occurrence: None)
  Receive Date: 20111220
  Receipt Date: 20110414
  Transmission Date: 20120403
  Serious: Yes (Other)
  Sender: FDA-Public Use
  Company Number: 2011001475

PATIENT
  Age: 59 Year
  Sex: Female
  Weight: 63.5036 kg

DRUGS (2)
  1. PERCOCET [Concomitant]
  2. FENTANYL CITRATE [Suspect]
     Indication: FIBROMYALGIA
     Dosage: (AS REQUIRED), BU
     Route: 002
     Dates: start: 20080101, end: 20110320

REACTIONS (12)
  - MENTAL IMPAIRMENT [None]
  - RHINORRHOEA [None]
  - MOTOR DYSFUNCTION [None]
  - PRURITUS [None]
  - PAIN IN EXTREMITY [None]
  - DRUG PRESCRIBING ERROR [None]
  - DRUG WITHDRAWAL SYNDROME [None]
  - LACRIMATION INCREASED [None]
  - ASTHENIA [None]
  - ABDOMINAL PAIN UPPER [None]
  - CHILLS [None]
  - HYPERHIDROSIS [None]
